FAERS Safety Report 4622708-5 (Version None)
Quarter: 2005Q1

REPORT INFORMATION
  Report Type: 
  Country: None (occurrence: None)
  Receive Date: 20050329
  Receipt Date: 20050329
  Transmission Date: 20050727
  Serious: Yes (Death)
  Sender: FDA-Public Use
  Company Number: None

PATIENT
  Sex: Female
  Weight: 53.0709 kg

DRUGS (3)
  1. GEMCITABINE [Suspect]
     Indication: PANCREATIC CARCINOMA
     Dosage: 1000MG/M2 DAY 1 + 15 INTRAVENOUS
     Route: 042
     Dates: start: 20041025, end: 20050223
  2. CISPLATIN [Suspect]
     Indication: PANCREATIC CARCINOMA
     Dosage: 1000MG/M2  DAY 1 + 15 INTRAVENOUS
     Route: 042
     Dates: start: 20041025, end: 20050223
  3. BEVACIZUMAB [Suspect]
     Indication: PANCREATIC CARCINOMA
     Dosage: 10MG/KG  DAY 1 + 15 INTRAVENOUS
     Route: 042
     Dates: start: 20041025, end: 20050223

REACTIONS (2)
  - DISEASE PROGRESSION [None]
  - INTESTINAL PERFORATION [None]
